FAERS Safety Report 8545264-8 (Version None)
Quarter: 2012Q3

REPORT INFORMATION
  Report Type: 
  Country: None (occurrence: None)
  Receive Date: 20120727
  Receipt Date: 20120719
  Transmission Date: 20120928
  Serious: Yes (Other)
  Sender: FDA-Public Use
  Company Number: CN-BAXTER-2012BAX012246

PATIENT
  Sex: Male
  Weight: 76.5 kg

DRUGS (2)
  1. SODIUM CHLORIDE INJ [Suspect]
     Indication: MEDICATION DILUTION
     Route: 041
     Dates: start: 20091202, end: 20091202
  2. PLASMIN [Suspect]
     Dosage: 100 U
     Dates: start: 20091202, end: 20091202

REACTIONS (5)
  - PYREXIA [None]
  - DYSPNOEA [None]
  - HEADACHE [None]
  - CHILLS [None]
  - CHEST DISCOMFORT [None]
